FAERS Safety Report 6214864-2 (Version None)
Quarter: 2009Q2

REPORT INFORMATION
  Report Type: 
  Country: None (occurrence: None)
  Receive Date: 20090604
  Receipt Date: 20090519
  Transmission Date: 20091009
  Serious: Yes (Hospitalization)
  Sender: FDA-Public Use
  Company Number: US-PFIZER INC-2005136952

PATIENT
  Sex: Male
  Weight: 98.866 kg

DRUGS (13)
  1. PLACEBO [Suspect]
     Indication: HIV INFECTION
     Dosage: 2X/DAY
     Route: 048
     Dates: start: 20050203, end: 20060622
  2. ENFUVIRTIDE [Suspect]
     Route: 058
     Dates: start: 20050203
  3. TRUVADA [Suspect]
     Route: 048
     Dates: start: 20050203
  4. SAQUINAVIR [Concomitant]
     Route: 048
     Dates: start: 20050203
  5. RITONAVIR [Concomitant]
     Route: 048
     Dates: start: 20050203
  6. FLUCONAZOLE [Concomitant]
     Route: 048
     Dates: start: 19950925
  7. BACTRIM [Concomitant]
     Route: 048
     Dates: start: 19950101
  8. AZITHROMYCIN [Concomitant]
     Route: 048
     Dates: start: 20041004
  9. HYDROCHLOROTHIAZIDE [Concomitant]
     Route: 048
     Dates: start: 20041004
  10. DOXEPIN HCL [Concomitant]
     Route: 048
     Dates: start: 20050817
  11. OXYCONTIN [Concomitant]
     Route: 048
     Dates: start: 20050726
  12. OXYCODONE [Concomitant]
     Route: 048
     Dates: start: 20050726
  13. IMITREX [Concomitant]
     Route: 048
     Dates: start: 20050913

REACTIONS (2)
  - DEPRESSION [None]
  - SUICIDAL IDEATION [None]
